FAERS Safety Report 8012299-3 (Version None)
Quarter: 2011Q4

REPORT INFORMATION
  Report Type: 
  Country: None (occurrence: None)
  Receive Date: 20111228
  Receipt Date: 20111220
  Transmission Date: 20120403
  Serious: Yes (Other)
  Sender: FDA-Public Use
  Company Number: US-PFIZER INC-2011256667

PATIENT
  Age: 82 Year
  Sex: Female

DRUGS (11)
  1. METOPROLOL [Concomitant]
     Dosage: UNK
  2. COLACE [Suspect]
     Indication: CONSTIPATION
     Dosage: UNK
  3. INSULIN [Concomitant]
     Dosage: UNK
  4. NOVOLOG [Concomitant]
     Dosage: UNK
  5. LANTUS [Concomitant]
  6. VITAMIN D [Concomitant]
     Dosage: UNK
  7. MECLIZINE HYDROCHLORIDE [Suspect]
     Dosage: 25 MG, UNK
  8. VITAMIN C [Concomitant]
     Dosage: UNK
  9. ASPIRIN [Concomitant]
     Dosage: 81 MG, UNK
  10. LOVAZA [Concomitant]
     Dosage: UNK
  11. PLAVIX [Concomitant]
     Dosage: UNK

REACTIONS (1)
  - BLOOD GLUCOSE DECREASED [None]
